FAERS Safety Report 25206307 (Version 1)
Quarter: 2025Q2

REPORT INFORMATION
  Report Type: Spontaneous
  Country: CA (occurrence: CA)
  Receive Date: 20250417
  Receipt Date: 20250417
  Transmission Date: 20250716
  Serious: Yes (Other)
  Sender: TAKEDA
  Company Number: CA-JNJFOC-20250414335

PATIENT
  Age: 57 Year
  Sex: Male

DRUGS (9)
  1. VELCADE [Suspect]
     Active Substance: BORTEZOMIB
     Indication: C3 glomerulopathy
  2. DEXAMETHASONE [Suspect]
     Active Substance: DEXAMETHASONE
     Indication: C3 glomerulopathy
  3. DEXAMETHASONE SODIUM PHOSPHATE [Suspect]
     Active Substance: DEXAMETHASONE SODIUM PHOSPHATE
     Indication: C3 glomerulopathy
  4. MYFORTIC [Suspect]
     Active Substance: MYCOPHENOLATE SODIUM
     Indication: C3 glomerulopathy
  5. PREDNISONE [Concomitant]
     Active Substance: PREDNISONE
     Dosage: 5 MILLIGRAM, QD
  6. MYCOPHENOLATE SODIUM [Concomitant]
     Active Substance: MYCOPHENOLATE SODIUM
     Dosage: 720 MILLIGRAM, BID
  7. TACROLIMUS [Concomitant]
     Active Substance: TACROLIMUS
  8. BASILIXIMAB [Concomitant]
     Active Substance: BASILIXIMAB
  9. CELLCEPT [Concomitant]
     Active Substance: MYCOPHENOLATE MOFETIL

REACTIONS (6)
  - Proteinuria [Unknown]
  - Polyomavirus viraemia [Unknown]
  - End stage renal disease [Unknown]
  - Blood creatinine increased [Unknown]
  - Neuropathy peripheral [Unknown]
  - Off label use [Unknown]
